FAERS Safety Report 22737061 (Version 3)
Quarter: 2024Q1

REPORT INFORMATION
  Report Type: Report from Study
  Country: US (occurrence: US)
  Receive Date: 20230721
  Receipt Date: 20240213
  Transmission Date: 20240409
  Serious: Yes (Other)
  Sender: FDA-Public Use
  Company Number: US-ABBVIE-5285985

PATIENT
  Age: 57 Year
  Sex: Female
  Weight: 69.8 kg

DRUGS (1)
  1. RINVOQ [Suspect]
     Active Substance: UPADACITINIB
     Indication: Colitis ulcerative
     Route: 048
     Dates: start: 20230310

REACTIONS (2)
  - Knee operation [Unknown]
  - Muscle strain [Unknown]

NARRATIVE: CASE EVENT DATE: 20230613
